FAERS Safety Report 25712085 (Version 2)
Quarter: 2025Q4

REPORT INFORMATION
  Report Type: Spontaneous
  Country: US (occurrence: US)
  Receive Date: 20250821
  Receipt Date: 20251117
  Transmission Date: 20260117
  Serious: No
  Sender: BAYER HEALTHCARE PHARMACEUTICALS INC.
  Company Number: US-BAYER-2025A110623

PATIENT
  Age: 35 Year
  Sex: Male

DRUGS (2)
  1. JIVI [Suspect]
     Active Substance: DAMOCTOCOG ALFA PEGOL
     Indication: Factor VIII deficiency
     Dosage: STRENGTH: 3000IU , INFUSE: 4200 UNITS (3780-4620)
     Route: 042
     Dates: start: 202501
  2. JIVI [Suspect]
     Active Substance: DAMOCTOCOG ALFA PEGOL
     Indication: Factor VIII deficiency
     Dosage: STRENGTH: 1000IU , INFUSE: 4200 UNITS (3780-4620)
     Route: 042
     Dates: start: 202501

REACTIONS (1)
  - Vasectomy [None]

NARRATIVE: CASE EVENT DATE: 20250815
